FAERS Safety Report 8835638 (Version 1)
Quarter: 2012Q4

REPORT INFORMATION
  Report Type: 
  Country: DE (occurrence: DE)
  Receive Date: 20121011
  Receipt Date: 20121011
  Transmission Date: 20130627
  Serious: Yes (Other)
  Sender: FDA-Public Use
  Company Number: DE-ROCHE-1097956

PATIENT
  Age: 64 Year
  Sex: Female

DRUGS (2)
  1. HERCEPTIN [Suspect]
     Indication: BREAST CANCER METASTATIC
     Route: 065
     Dates: start: 20120321, end: 20120702
  2. XGEVA [Concomitant]
     Route: 065
     Dates: start: 20120321

REACTIONS (2)
  - Ejection fraction decreased [Recovering/Resolving]
  - Mitral valve incompetence [Unknown]
